FAERS Safety Report 9252462 (Version 1)
Quarter: 2013Q1

REPORT INFORMATION
  Report Type: Spontaneous
  Country: US (occurrence: None)
  Receive Date: 20130305
  Receipt Date: 20130305
  Transmission Date: 20140127
  Serious: Yes (Other)
  Sender: FDA-Public Use
  Company Number: 163-21880-12091456 (0)

PATIENT
  Age: 81 Year
  Sex: Male

DRUGS (4)
  1. REVLIMID [Suspect]
     Indication: LYMPHOMA
     Dosage: 10 MG, 21 IN 21 D, PO
     Dates: start: 20120428
  2. ASPIRIN (ACETYLSALICYLIC ACID) [Concomitant]
  3. CALCIUM + VITAMIN D (LEKOVIT CA) [Concomitant]
  4. VITAMINS [Concomitant]

REACTIONS (4)
  - Fatigue [None]
  - Rhinorrhoea [None]
  - Oedema peripheral [None]
  - Diarrhoea [None]
